FAERS Safety Report 9517627 (Version 1)
Quarter: 2013Q3

REPORT INFORMATION
  Report Type: Report from Study
  Country: MX (occurrence: MX)
  Receive Date: 20130912
  Receipt Date: 20130912
  Transmission Date: 20140515
  Serious: Yes (Death)
  Sender: FDA-Public Use
  Company Number: MX-ROCHE-1274109

PATIENT
  Age: 46 Year
  Sex: Female
  Weight: 44 kg

DRUGS (1)
  1. HERCEPTIN [Suspect]
     Indication: BREAST CANCER
     Route: 042
     Dates: start: 201206, end: 201305

REACTIONS (1)
  - Respiratory arrest [Fatal]
